FAERS Safety Report 7925954-8 (Version None)
Quarter: 2011Q4

REPORT INFORMATION
  Report Type: 
  Country: None (occurrence: None)
  Receive Date: 20111118
  Receipt Date: 20110415
  Transmission Date: 20120403
  Serious: No
  Sender: FDA-Public Use
  Company Number: US-AMGEN-USASP2011020031

PATIENT
  Age: 52 Year
  Sex: Male

DRUGS (2)
  1. ENBREL [Suspect]
     Indication: PSORIATIC ARTHROPATHY
     Dosage: 50 MG, QWK
     Dates: start: 20110125, end: 20110331
  2. ENBREL [Suspect]
     Indication: PSORIASIS

REACTIONS (6)
  - INSOMNIA [None]
  - SINUSITIS [None]
  - URTICARIA [None]
  - SUNBURN [None]
  - DISCOMFORT [None]
  - PRURITUS [None]
